FAERS Safety Report 5859147-5 (Version None)
Quarter: 2008Q3

REPORT INFORMATION
  Report Type: 
  Country: None (occurrence: None)
  Receive Date: 20080826
  Receipt Date: 20080826
  Transmission Date: 20090109
  Serious: Yes (Hospitalization, Disabling)
  Sender: FDA-Public Use
  Company Number: None

PATIENT
  Age: 74 Year
  Sex: Female
  Weight: 87.0906 kg

DRUGS (5)
  1. SUTENT [Suspect]
     Indication: METASTASES TO GASTROINTESTINAL TRACT
     Dosage: 50MG PO QDAILY
     Route: 048
     Dates: start: 20080619, end: 20080721
  2. SUTENT [Suspect]
     Indication: RENAL CELL CARCINOMA
     Dosage: 50MG PO QDAILY
     Route: 048
     Dates: start: 20080619, end: 20080721
  3. SYNTHROID [Concomitant]
  4. DARVOCET-N 100 [Concomitant]
  5. COLACE [Concomitant]

REACTIONS (3)
  - GUILLAIN-BARRE SYNDROME [None]
  - MILLER FISHER SYNDROME [None]
  - PARAPARESIS [None]
